FAERS Safety Report 24187383 (Version 1)
Quarter: 2024Q3

REPORT INFORMATION
  Report Type: Report from Study
  Country: KW (occurrence: None)
  Receive Date: 20240808
  Receipt Date: 20240808
  Transmission Date: 20241017
  Serious: Yes (Other)
  Sender: ASTRAZENECA
  Company Number: 2021A908442

PATIENT
  Age: 14518 Day
  Sex: Male

DRUGS (1)
  1. TAGRISSO [Suspect]
     Active Substance: OSIMERTINIB
     Indication: Non-small cell lung cancer
     Route: 048
     Dates: start: 20210207

REACTIONS (2)
  - Spinal cord neoplasm [Unknown]
  - Nerve compression [Unknown]

NARRATIVE: CASE EVENT DATE: 20211228
